FAERS Safety Report 10955517 (Version 1)
Quarter: 2015Q1

REPORT INFORMATION
  Report Type: Spontaneous
  Country: US (occurrence: None)
  Receive Date: 20150325
  Receipt Date: 20150325
  Transmission Date: 20150721
  Serious: Yes (Hospitalization)
  Sender: FDA-Public Use
  Company Number: None

PATIENT
  Age: 68 Year
  Sex: Male
  Weight: 81.8 kg

DRUGS (2)
  1. LEUPROLIDE ACETATE. [Suspect]
     Active Substance: LEUPROLIDE ACETATE
     Dates: end: 20141104
  2. CASODEX [Suspect]
     Active Substance: BICALUTAMIDE
     Dates: end: 20150303

REACTIONS (2)
  - Syncope [None]
  - Vomiting [None]

NARRATIVE: CASE EVENT DATE: 20150317
